FAERS Safety Report 8413517-X (Version None)
Quarter: 2012Q2

REPORT INFORMATION
  Report Type: 
  Country: None (occurrence: None)
  Receive Date: 20120605
  Receipt Date: 20120530
  Transmission Date: 20120825
  Serious: Yes (Congenital Anomaly)
  Sender: FDA-Public Use
  Company Number: US-GLAXOSMITHKLINE-A0935510A

PATIENT
  Sex: Male

DRUGS (6)
  1. ZOLOFT [Concomitant]
     Route: 064
     Dates: start: 20070101
  2. SERTRALINE HYDROCHLORIDE [Concomitant]
     Dates: start: 20071001
  3. MULTI-VITAMINS [Concomitant]
  4. VISTARIL [Concomitant]
     Indication: ANXIETY
     Dates: start: 20070201
  5. VISTARIL [Concomitant]
  6. PAXIL CR [Suspect]
     Indication: ANXIETY
     Dosage: 37.5MG PER DAY
     Route: 064
     Dates: start: 20070227, end: 20071001

REACTIONS (5)
  - PULMONARY APLASIA [None]
  - RENAL DYSPLASIA [None]
  - CONGENITAL PULMONARY HYPERTENSION [None]
  - DEXTROCARDIA [None]
  - FOETAL EXPOSURE DURING PREGNANCY [None]
